FAERS Safety Report 9123985 (Version 1)
Quarter: 2013Q1

REPORT INFORMATION
  Report Type: Spontaneous
  Country: FR (occurrence: FR)
  Receive Date: 20130227
  Receipt Date: 20130227
  Transmission Date: 20140127
  Serious: Yes (Hospitalization)
  Sender: FDA-Public Use
  Company Number: FR-ASTRAZENECA-2013SE12505

PATIENT
  Age: 2945 Week
  Sex: Male

DRUGS (3)
  1. INEXIUM [Suspect]
     Indication: PROPHYLAXIS
     Route: 048
     Dates: end: 20121114
  2. PREVISCAN [Suspect]
     Indication: DEEP VEIN THROMBOSIS
     Route: 048
     Dates: start: 20120725, end: 20121110
  3. PARAPSYLLINE [Concomitant]

REACTIONS (1)
  - Haematoma [Recovered/Resolved]
